FAERS Safety Report 6988631-6 (Version None)
Quarter: 2010Q3

REPORT INFORMATION
  Report Type: 
  Country: None (occurrence: None)
  Receive Date: 20100916
  Receipt Date: 20100908
  Transmission Date: 20110219
  Serious: Yes (Other)
  Sender: FDA-Public Use
  Company Number: BR-ABBOTT-10P-020-0628952-00

PATIENT
  Sex: Female
  Weight: 51 kg

DRUGS (21)
  1. HUMIRA [Suspect]
     Indication: RHEUMATOID ARTHRITIS
     Route: 058
  2. METHOTREXATE [Concomitant]
     Indication: RHEUMATOID ARTHRITIS
     Route: 058
  3. METHOTREXATE [Concomitant]
     Route: 058
     Dates: start: 20090701
  4. OMEPRAZOLE [Concomitant]
     Indication: GASTRIC DISORDER
     Route: 048
  5. ALENDRONATE SODIUM [Concomitant]
     Indication: OSTEOPOROSIS
  6. ALENDRONATE SODIUM [Concomitant]
     Indication: POSTMENOPAUSE
  7. ALENDRONATE SODIUM [Concomitant]
     Indication: RHEUMATOID ARTHRITIS
  8. PIROXICAM [Concomitant]
     Indication: OSTEOARTHRITIS
     Route: 048
  9. PANTEOFLAX [Concomitant]
     Indication: DYSPEPSIA
     Route: 048
  10. PANCREATIN 150MG/ DIMETICONE 80MG [Concomitant]
     Indication: DYSPEPSIA
     Route: 048
  11. HARPAGOPHYTUM PROCUMBENS [Concomitant]
     Indication: PRODUCT USED FOR UNKNOWN INDICATION
     Route: 048
  12. DOMPERIDONE [Concomitant]
     Indication: GASTRIC DISORDER
     Route: 048
  13. SECLITRAL [Concomitant]
     Indication: PRODUCT USED FOR UNKNOWN INDICATION
     Route: 048
  14. PREDNISONE [Concomitant]
     Indication: RHEUMATOID ARTHRITIS
     Route: 048
  15. MELOXICAM [Concomitant]
     Indication: PAIN
     Route: 048
  16. FOLIC ACID [Concomitant]
     Indication: BONE DISORDER
     Route: 048
  17. CALCIUM CARBONATE W/COLECALCIFEROL [Concomitant]
     Indication: OSTEOPOROSIS
     Route: 048
  18. ACETYLSALICYLIC ACID [Concomitant]
     Indication: BLOOD DISORDER
     Route: 048
     Dates: start: 20090901
  19. NORTRIPTYLINE HYDROCHLORIDE [Concomitant]
     Indication: ANTIDEPRESSANT THERAPY
     Route: 048
  20. ALPRAZOLAM [Concomitant]
     Indication: ANXIETY
     Route: 048
  21. PANCREATIN [Concomitant]
     Indication: GASTRIC DISORDER
     Route: 048

REACTIONS (19)
  - ABDOMINAL DISTENSION [None]
  - ARTHRALGIA [None]
  - CARDIOVASCULAR DISORDER [None]
  - DIZZINESS [None]
  - EYE DISCHARGE [None]
  - EYE INFLAMMATION [None]
  - FAT TISSUE INCREASED [None]
  - FATIGUE [None]
  - GASTROOESOPHAGEAL REFLUX DISEASE [None]
  - INJECTION SITE NODULE [None]
  - INJECTION SITE PAIN [None]
  - LIMB INJURY [None]
  - LIPOMATOSIS [None]
  - LOCAL SWELLING [None]
  - MEMORY IMPAIRMENT [None]
  - OSTEOARTHRITIS [None]
  - SKIN DISCOLOURATION [None]
  - VISUAL IMPAIRMENT [None]
  - WOUND INFECTION [None]
